FAERS Safety Report 9300336 (Version 1)
Quarter: 2013Q2

REPORT INFORMATION
  Report Type: Spontaneous
  Country: US (occurrence: US)
  Receive Date: 20130521
  Receipt Date: 20130521
  Transmission Date: 20140414
  Serious: Yes (Other)
  Sender: FDA-Public Use
  Company Number: US-PFIZER INC-2013154436

PATIENT
  Age: 57 Year
  Sex: Male
  Weight: 79.37 kg

DRUGS (2)
  1. DETROL LA [Suspect]
     Indication: POLLAKIURIA
     Dosage: 1 MG, 1X/DAY
     Dates: start: 2011
  2. LOVASTATIN [Concomitant]
     Indication: BLOOD CHOLESTEROL INCREASED
     Dosage: 40 MG, 1X/DAY

REACTIONS (2)
  - Prostate cancer [Recovered/Resolved]
  - Prostatic specific antigen increased [Unknown]
